FAERS Safety Report 8217902-0 (Version None)
Quarter: 2012Q1

REPORT INFORMATION
  Report Type: 
  Country: None (occurrence: None)
  Receive Date: 20120319
  Receipt Date: 20120307
  Transmission Date: 20120608
  Serious: Yes (Hospitalization)
  Sender: FDA-Public Use
  Company Number: US-BAYER-2012-023581

PATIENT
  Age: 49 Year
  Sex: Female

DRUGS (7)
  1. EFFEXOR [Concomitant]
     Dosage: UNK
     Dates: start: 20090216
  2. YAZ [Suspect]
  3. IBUPROFEN (ADVIL) [Concomitant]
     Dosage: UNK
     Dates: start: 20090406
  4. TUSSIN DM [Concomitant]
     Dosage: UNK
     Dates: start: 20090406
  5. ATACAND [Concomitant]
     Dosage: UNK
     Dates: start: 20090216
  6. AMOXICILLIN [Concomitant]
     Dosage: UNK
     Dates: start: 20090406
  7. SIMVASTATIN [Concomitant]
     Dosage: UNK
     Dates: start: 20090216

REACTIONS (2)
  - SUPERIOR SAGITTAL SINUS THROMBOSIS [None]
  - TRANSVERSE SINUS THROMBOSIS [None]
